FAERS Safety Report 25506823 (Version 1)
Quarter: 2025Q3

REPORT INFORMATION
  Report Type: Spontaneous
  Country: US (occurrence: US)
  Receive Date: 20250702
  Receipt Date: 20250702
  Transmission Date: 20251020
  Serious: No
  Sender: RADIUS PHARM
  Company Number: US-RADIUS HEALTH INC.-2025US002072

PATIENT
  Sex: Female

DRUGS (2)
  1. TYMLOS [Suspect]
     Active Substance: ABALOPARATIDE
     Indication: Osteoporosis
     Route: 065
     Dates: start: 20250221
  2. VALIUM [Concomitant]
     Active Substance: DIAZEPAM
     Indication: Product used for unknown indication

REACTIONS (9)
  - Heart rate increased [Recovered/Resolved]
  - Palpitations [Recovered/Resolved]
  - Blood pressure fluctuation [Recovered/Resolved]
  - Headache [Not Recovered/Not Resolved]
  - Heart rate irregular [Unknown]
  - Insomnia [Unknown]
  - Injection site pain [Unknown]
  - Fatigue [Unknown]
  - Fear [Unknown]

NARRATIVE: CASE EVENT DATE: 20250101
